FAERS Safety Report 6295549-3 (Version None)
Quarter: 2009Q3

REPORT INFORMATION
  Report Type: 
  Country: None (occurrence: None)
  Receive Date: 20090731
  Receipt Date: 20090707
  Transmission Date: 20100115
  Serious: Yes (Hospitalization)
  Sender: FDA-Public Use
  Company Number: DSU-2009-01476

PATIENT
  Sex: Male

DRUGS (2)
  1. WELCHOL [Suspect]
     Indication: HYPERLIPIDAEMIA
     Dosage: PER ORAL
     Route: 048
     Dates: start: 20090715
  2. LEMONADE ( ALL OTHER THERAPEUTIC PRODUCTS) [Suspect]

REACTIONS (3)
  - DRUG HYPERSENSITIVITY [None]
  - FOOD ALLERGY [None]
  - SWOLLEN TONGUE [None]
